FAERS Safety Report 8960941 (Version 2)
Quarter: 2013Q1

REPORT INFORMATION
  Report Type: Spontaneous
  Country: DE (occurrence: DE)
  Receive Date: 20121212
  Receipt Date: 20130308
  Transmission Date: 20140127
  Serious: Yes (Hospitalization)
  Sender: FDA-Public Use
  Company Number: DE-B.I. PHARMACEUTICALS,INC./RIDGEFIELD-2012-DE-02964DE

PATIENT
  Age: 77 Year
  Sex: Female

DRUGS (4)
  1. PRADAXA [Suspect]
     Indication: ATRIAL FIBRILLATION
     Dosage: 220 MG
     Dates: end: 20121129
  2. PRADAXA [Suspect]
     Dosage: 300 MG
     Dates: start: 20121204
  3. BISOPROLOL/HCT [Concomitant]
     Dosage: 5/12.5 MG
  4. SIMVASTATIN [Concomitant]
     Dosage: 40 MG

REACTIONS (5)
  - Ischaemic stroke [Recovered/Resolved]
  - Dizziness [Recovered/Resolved]
  - Communication disorder [Recovered/Resolved]
  - Nausea [Recovered/Resolved]
  - Visual impairment [Recovered/Resolved]
